FAERS Safety Report 11419963 (Version 1)
Quarter: 2015Q3

REPORT INFORMATION
  Report Type: Spontaneous
  Country: US (occurrence: None)
  Receive Date: 20150825
  Receipt Date: 20150825
  Transmission Date: 20151125
  Serious: Yes (Disabling)
  Sender: FDA-Public Use
  Company Number: None

PATIENT
  Age: 24 Year
  Sex: Male
  Weight: 77.11 kg

DRUGS (8)
  1. AMBIEN CR [Concomitant]
     Active Substance: ZOLPIDEM TARTRATE
  2. MULTIVITAMIN [Concomitant]
     Active Substance: VITAMINS
  3. FISH OIL [Concomitant]
     Active Substance: FISH OIL
  4. VITAMIN B12 [Concomitant]
     Active Substance: CYANOCOBALAMIN
  5. PROBIOTIC [Concomitant]
     Active Substance: PROBIOTICS NOS
  6. NUVIGIL [Concomitant]
     Active Substance: ARMODAFINIL
  7. ZENZEDI [Concomitant]
     Active Substance: DEXTROAMPHETAMINE SULFATE
  8. PRISTIQ EXTENDED RELEASE [Suspect]
     Active Substance: DESVENLAFAXINE SUCCINATE
     Indication: DEPRESSION
     Dosage: 1 PILL
     Route: 048
     Dates: start: 20150528, end: 20150824

REACTIONS (9)
  - Feeling jittery [None]
  - Constipation [None]
  - Depression [None]
  - Blood cholesterol increased [None]
  - Vertigo [None]
  - Fatigue [None]
  - Hallucination, auditory [None]
  - Vision blurred [None]
  - Nervousness [None]

NARRATIVE: CASE EVENT DATE: 20150820
